FAERS Safety Report 4482085-X (Version None)
Quarter: 2004Q4

REPORT INFORMATION
  Report Type: 
  Country: None (occurrence: None)
  Receive Date: 20041020
  Receipt Date: 20041008
  Transmission Date: 20050328
  Serious: Yes (Other)
  Sender: FDA-Public Use
  Company Number: 2004076552

PATIENT
  Age: 67 Year
  Sex: Male

DRUGS (1)
  1. VIAGRA [Suspect]
     Indication: ILL-DEFINED DISORDER
     Dosage: 50 MG
     Dates: end: 20041001

REACTIONS (3)
  - ATRIAL FIBRILLATION [None]
  - THYROID DISORDER [None]
  - THYROID NEOPLASM [None]
